FAERS Safety Report 6268754-X (Version None)
Quarter: 2009Q3

REPORT INFORMATION
  Report Type: 
  Country: None (occurrence: None)
  Receive Date: 20090713
  Receipt Date: 20090713
  Transmission Date: 20100115
  Serious: Yes (Other)
  Sender: FDA-Public Use
  Company Number: None

PATIENT
  Age: 22 Year
  Sex: Female
  Weight: 58.9676 kg

DRUGS (1)
  1. ZICAM ZICAM LLC [Suspect]
     Indication: NASAL CONGESTION
     Dosage: ONE FULL SQUIRT 3 TIMES A DAY NASAL (DURATION: A WEEK)
     Route: 045
     Dates: start: 20090220, end: 20090226

REACTIONS (5)
  - AGEUSIA [None]
  - ANOSMIA [None]
  - HYPOGEUSIA [None]
  - PAROSMIA [None]
  - PRODUCT QUALITY ISSUE [None]
